FAERS Safety Report 8882389 (Version 1)
Quarter: 2012Q4

REPORT INFORMATION
  Report Type: 
  Country: US (occurrence: US)
  Receive Date: 20121102
  Receipt Date: 20121102
  Transmission Date: 20130627
  Serious: Yes (Life-Threatening, Hospitalization, Other)
  Sender: FDA-Public Use
  Company Number: PHEH2012US021337

PATIENT
  Age: 53 Year
  Sex: Female
  Weight: 59 kg

DRUGS (5)
  1. AFINITOR [Suspect]
     Indication: BREAST CANCER
     Dosage: 10 mg, daily
     Route: 048
     Dates: start: 20120801, end: 20120816
  2. EXEMESTANE [Concomitant]
     Indication: BREAST CANCER
     Dosage: 25 mg, daily
     Route: 048
     Dates: start: 20120801, end: 20120816
  3. MULTI-VIT [Concomitant]
     Indication: NUTRITIONAL SUPPORT
     Route: 048
     Dates: start: 20110119
  4. POTASSIUM [Concomitant]
     Indication: BLOOD POTASSIUM ABNORMAL
     Dosage: 20 MEq, daily
     Route: 048
     Dates: start: 20110314
  5. METOPROLOL SUCCINATE [Concomitant]
     Indication: BLOOD PRESSURE ABNORMAL
     Dosage: 25 mg, daily
     Route: 048
     Dates: start: 20120816

REACTIONS (10)
  - Megacolon [Recovered/Resolved]
  - Abdominal pain upper [Recovered/Resolved]
  - Bowel movement irregularity [Recovered/Resolved]
  - Clostridium difficile colitis [Recovered/Resolved]
  - Diarrhoea [Recovered/Resolved]
  - Pyrexia [Recovered/Resolved]
  - Chills [Recovered/Resolved]
  - Hypotension [Unknown]
  - Sepsis [Unknown]
  - Respiratory failure [Unknown]
